FAERS Safety Report 7630253-8 (Version None)
Quarter: 2011Q3

REPORT INFORMATION
  Report Type: 
  Country: None (occurrence: None)
  Receive Date: 20110722
  Receipt Date: 20110714
  Transmission Date: 20111222
  Serious: Yes (Hospitalization, Other)
  Sender: FDA-Public Use
  Company Number: US-BAYER-US-2007-000913

PATIENT
  Age: 35 Year
  Sex: Female

DRUGS (22)
  1. BETASERON [Suspect]
     Indication: RELAPSING-REMITTING MULTIPLE SCLEROSIS
     Route: 058
     Dates: start: 20060920
  2. BETASERON [Suspect]
     Dosage: UNK
     Dates: end: 20100404
  3. BETASERON [Suspect]
     Dosage: 8 MIU, QOD
     Route: 058
     Dates: start: 20101001, end: 20110503
  4. BETASERON [Suspect]
     Route: 058
     Dates: start: 20080820, end: 20090401
  5. VICODIN [Concomitant]
     Indication: ARTHRALGIA
  6. EMLA [Concomitant]
  7. SOLU-MEDROL [Concomitant]
     Indication: DIPLOPIA
  8. SOLU-MEDROL [Concomitant]
     Indication: NIGHT SWEATS
  9. LYRICA [Concomitant]
  10. BETASERON [Suspect]
     Route: 058
  11. SOLU-MEDROL [Concomitant]
     Indication: GAIT DISTURBANCE
  12. BETASERON [Suspect]
     Dosage: UNK
     Dates: start: 20060401, end: 20060715
  13. BETASERON [Suspect]
     Route: 058
     Dates: end: 20070112
  14. BETASERON [Suspect]
     Dosage: 6 MIU, QOD
     Route: 058
  15. BETASERON [Suspect]
     Route: 058
     Dates: start: 20091008
  16. SOLU-MEDROL [Concomitant]
     Indication: BALANCE DISORDER
  17. MUSCLE RELAXANTS [Concomitant]
     Indication: MUSCLE DISORDER
  18. BETASERON [Suspect]
     Route: 058
     Dates: start: 20080903
  19. SOLU-MEDROL [Concomitant]
     Indication: FALL
  20. ANALGESICS [Concomitant]
  21. SOLU-MEDROL [Concomitant]
     Indication: VISION BLURRED
     Dosage: UNK
     Route: 042
     Dates: start: 20100801
  22. SOLU-MEDROL [Concomitant]
     Indication: EYE PAIN

REACTIONS (49)
  - KIDNEY INFECTION [None]
  - FLUSHING [None]
  - PAIN [None]
  - GASTROENTERITIS VIRAL [None]
  - DIPLOPIA [None]
  - TREMOR [None]
  - DYSPNOEA [None]
  - HEADACHE [None]
  - HYPERSOMNIA [None]
  - URINARY INCONTINENCE [None]
  - FATIGUE [None]
  - ARTHRALGIA [None]
  - PAIN IN EXTREMITY [None]
  - IRRITABILITY [None]
  - EYE PAIN [None]
  - OEDEMA PERIPHERAL [None]
  - EPISTAXIS [None]
  - GAIT DISTURBANCE [None]
  - FEELING HOT [None]
  - NAUSEA [None]
  - BURNING SENSATION [None]
  - ASTHENIA [None]
  - VOMITING [None]
  - UTERINE INFECTION [None]
  - CONDITION AGGRAVATED [None]
  - DEHYDRATION [None]
  - BALANCE DISORDER [None]
  - JOINT SWELLING [None]
  - FORMICATION [None]
  - CHANGE OF BOWEL HABIT [None]
  - NIGHT SWEATS [None]
  - MULTIPLE SCLEROSIS [None]
  - HYPOAESTHESIA [None]
  - URINARY TRACT INFECTION [None]
  - DECREASED APPETITE [None]
  - INJECTION SITE HAEMATOMA [None]
  - DIARRHOEA [None]
  - MULTIPLE SCLEROSIS RELAPSE [None]
  - URINE ANALYSIS ABNORMAL [None]
  - NEUROPATHY PERIPHERAL [None]
  - OEDEMA [None]
  - FALL [None]
  - MIGRAINE [None]
  - INJECTION SITE PAIN [None]
  - ABDOMINAL PAIN [None]
  - MALAISE [None]
  - VISION BLURRED [None]
  - INCONTINENCE [None]
  - VISUAL IMPAIRMENT [None]
